FAERS Safety Report 18400557 (Version 2)
Quarter: 2020Q4

REPORT INFORMATION
  Report Type: Spontaneous
  Country: JP (occurrence: JP)
  Receive Date: 20201019
  Receipt Date: 20201201
  Transmission Date: 20210114
  Serious: Yes (Other)
  Sender: FDA-Public Use
  Company Number: JP-UCBSA-2020041014

PATIENT
  Age: 54 Year
  Sex: Male
  Weight: 54.8 kg

DRUGS (9)
  1. VIMPAT [Suspect]
     Active Substance: LACOSAMIDE
     Indication: PARTIAL SEIZURES WITH SECONDARY GENERALISATION
     Dosage: 300MG DAILY
     Route: 048
     Dates: start: 202002
  2. VIMPAT [Suspect]
     Active Substance: LACOSAMIDE
     Dosage: 150MG DAILY
     Route: 048
     Dates: start: 20200827, end: 20200828
  3. NEXIUM MUPS [ESOMEPRAZOLE MAGNESIUM] [Concomitant]
     Active Substance: ESOMEPRAZOLE MAGNESIUM
     Indication: PRODUCT USED FOR UNKNOWN INDICATION
     Dosage: 20 MG DAILY
     Route: 048
  4. BROTIZOLAM [Concomitant]
     Active Substance: BROTIZOLAM
     Route: 048
  5. TEPRENONE [Concomitant]
     Active Substance: TEPRENONE
     Dosage: 50 MILLIGRAM
     Route: 048
     Dates: end: 20200828
  6. VIMPAT [Suspect]
     Active Substance: LACOSAMIDE
     Dosage: 300 MG DAILY
     Route: 048
     Dates: end: 20200826
  7. BROTIZOLAM [Concomitant]
     Active Substance: BROTIZOLAM
     Indication: PRODUCT USED FOR UNKNOWN INDICATION
     Dosage: 0.25 MG DAILY
     Route: 048
  8. VIMPAT [Suspect]
     Active Substance: LACOSAMIDE
     Indication: FOCAL DYSCOGNITIVE SEIZURES
     Dosage: 200 MG DIALY
     Route: 048
     Dates: start: 20180727
  9. TEPRENONE [Concomitant]
     Active Substance: TEPRENONE
     Indication: PRODUCT USED FOR UNKNOWN INDICATION
     Dosage: 50 MG DAILY
     Route: 048
     Dates: end: 20200828

REACTIONS (2)
  - Anaplastic astrocytoma [Unknown]
  - Epilepsy [Unknown]

NARRATIVE: CASE EVENT DATE: 202002
